FAERS Safety Report 15396707 (Version 1)
Quarter: 2018Q3

REPORT INFORMATION
  Report Type: Report from Study
  Country: BR (occurrence: BR)
  Receive Date: 20180918
  Receipt Date: 20180918
  Transmission Date: 20181010
  Serious: Yes (Hospitalization)
  Sender: FDA-Public Use
  Company Number: BR-SA-2018SA249146

PATIENT
  Sex: Male
  Weight: 2.9 kg

DRUGS (3)
  1. INSULIN GLULISINE [Suspect]
     Active Substance: INSULIN GLULISINE
     Dosage: UNK UNK, UNK
     Route: 064
  2. INSULIN GLARGINE [Suspect]
     Active Substance: INSULIN GLARGINE
     Dosage: UNK UNK, UNK
     Route: 064
  3. METHYLDOPA. [Concomitant]
     Active Substance: METHYLDOPA
     Indication: BLOOD PRESSURE MEASUREMENT
     Dosage: UNK UNK, UNK
     Route: 065

REACTIONS (2)
  - Jaundice neonatal [Unknown]
  - Foetal exposure during pregnancy [Unknown]
